FAERS Safety Report 9587850 (Version 4)
Quarter: 2014Q1

REPORT INFORMATION
  Report Type: Spontaneous
  Country: US (occurrence: US)
  Receive Date: 20131003
  Receipt Date: 20140206
  Transmission Date: 20141002
  Serious: Yes (Hospitalization, Other)
  Sender: FDA-Public Use
  Company Number: ALCN2013US004568

PATIENT
  Age: 42 Year
  Sex: Female
  Weight: 68.27 kg

DRUGS (6)
  1. TIMOLOL [Suspect]
     Indication: GLAUCOMA
     Dosage: 1 GTT, QD
     Route: 047
     Dates: start: 2005, end: 20130828
  2. VITAMIN D3 [Concomitant]
     Indication: SUPPLEMENTATION THERAPY
     Dosage: 4000 MG, QD
     Route: 048
     Dates: start: 2010
  3. ESTRADIOL [Concomitant]
     Indication: POSTOPERATIVE CARE
     Dosage: 1 MG, QD
     Route: 048
  4. B12-VITAMIN [Concomitant]
     Indication: SUPPLEMENTATION THERAPY
     Dosage: 1000 ?G/L, QD
     Route: 048
     Dates: start: 2010
  5. LEVOTHYROXINE [Concomitant]
     Indication: HYPOTHYROIDISM
     Dosage: 88 ?G/L, UNK
     Route: 048
     Dates: start: 2009
  6. LEVOTHYROXINE [Concomitant]
     Dosage: 100 ?G/L, UNK
     Route: 048

REACTIONS (17)
  - Depressed level of consciousness [Recovered/Resolved]
  - Hypoaesthesia oral [Recovered/Resolved]
  - Hypoglycaemia [Recovered/Resolved]
  - Dysgeusia [Recovering/Resolving]
  - Nausea [Recovered/Resolved]
  - Oral pain [Recovered/Resolved]
  - Glossodynia [Recovered/Resolved]
  - Headache [Recovered/Resolved]
  - Tinnitus [Recovering/Resolving]
  - Feeling hot [Recovered/Resolved]
  - Paraesthesia oral [Recovered/Resolved]
  - Hunger [Recovering/Resolving]
  - Vision blurred [Recovering/Resolving]
  - Thirst [Unknown]
  - Blood thyroid stimulating hormone increased [Unknown]
  - Blood thyroid stimulating hormone decreased [Unknown]
  - Gastrointestinal disorder [Recovered/Resolved]
